FAERS Safety Report 5910031-8 (Version None)
Quarter: 2008Q4

REPORT INFORMATION
  Report Type: 
  Country: None (occurrence: None)
  Receive Date: 20081007
  Receipt Date: 20080729
  Transmission Date: 20090506
  Serious: No
  Sender: FDA-Public Use
  Company Number: US-ASTRAZENECA-2007UW08129

PATIENT
  Age: 79 Year
  Sex: Female
  Weight: 60.3 kg

DRUGS (7)
  1. ARIMIDEX [Suspect]
     Indication: BREAST CANCER
     Route: 048
     Dates: start: 20050101
  2. LOPRESSOR [Concomitant]
  3. NORVASC [Concomitant]
  4. POTASSIUM CHLORIDE [Concomitant]
  5. DYAZIDE [Concomitant]
  6. PRAVACHOL [Concomitant]
  7. MICRO-K [Concomitant]

REACTIONS (6)
  - ARTHRITIS [None]
  - EAR PRURITUS [None]
  - FATIGUE [None]
  - HYPERTENSION [None]
  - INSOMNIA [None]
  - VERTIGO [None]
